FAERS Safety Report 9375965 (Version 2)
Quarter: 2013Q3

REPORT INFORMATION
  Report Type: Spontaneous
  Country: CN (occurrence: CN)
  Receive Date: 20130629
  Receipt Date: 20130703
  Transmission Date: 20140515
  Serious: Yes (Hospitalization, Other)
  Sender: FDA-Public Use
  Company Number: CN-009507513-1306CHN011839

PATIENT
  Age: 80 Year
  Sex: Female

DRUGS (3)
  1. ALENDRONATE SODIUM [Suspect]
     Indication: OSTEOPOROSIS POSTMENOPAUSAL
     Dosage: 70 MG, QW
     Route: 048
  2. ASCORBIC ACID [Concomitant]
     Indication: ARTERIOSCLEROSIS
  3. NIACIN [Concomitant]
     Indication: ARTERIOSCLEROSIS

REACTIONS (3)
  - Jaw operation [Unknown]
  - Osteonecrosis of jaw [Unknown]
  - Impaired healing [Unknown]
